FAERS Safety Report 6902342-4 (Version None)
Quarter: 2010Q3

REPORT INFORMATION
  Report Type: 
  Country: None (occurrence: None)
  Receive Date: 20100803
  Receipt Date: 20080509
  Transmission Date: 20110219
  Serious: No
  Sender: FDA-Public Use
  Company Number: US-PFIZER INC-2008027415

PATIENT
  Sex: Female

DRUGS (5)
  1. LYRICA [Suspect]
     Dates: start: 20080311
  2. SIMVASTATIN [Concomitant]
  3. PAROXETINE HCL [Concomitant]
  4. ALPRAZOLAM [Concomitant]
  5. NEURONTIN [Concomitant]

REACTIONS (1)
  - EPISTAXIS [None]
